FAERS Safety Report 7997529-6 (Version None)
Quarter: 2011Q4

REPORT INFORMATION
  Report Type: 
  Country: None (occurrence: None)
  Receive Date: 20111212
  Receipt Date: 20111130
  Transmission Date: 20120403
  Serious: Yes (Hospitalization)
  Sender: FDA-Public Use
  Company Number: 2011027413

PATIENT
  Age: 56 Year
  Sex: Female
  Weight: 83.0083 kg

DRUGS (25)
  1. BENZONATATE [Concomitant]
  2. ADVAIR DISKUS 100/50 [Concomitant]
  3. ALBUTEROL [Concomitant]
  4. VITAMIN B12 [Concomitant]
  5. ZEMAIRA [Suspect]
     Indication: CHRONIC OBSTRUCTIVE PULMONARY DISEASE
     Dates: start: 20110105
  6. ZEMAIRA [Suspect]
     Indication: ALPHA-1 ANTI-TRYPSIN DEFICIENCY
     Dates: start: 20110105
  7. FOLIC ACID [Concomitant]
  8. CARVEDILOL [Concomitant]
  9. IBUPROFEN [Concomitant]
  10. LORAZEPAM [Concomitant]
  11. ZEMAIRA [Suspect]
     Indication: CHRONIC OBSTRUCTIVE PULMONARY DISEASE
     Dosage: (60 MG/KG 1X/WEEK, 873 MG/20 ML VIAL; 0.08 ML/KG/MIN (6.68 ML/MIN) SUBCUTANEOUS)
     Route: 058
     Dates: start: 20101117
  12. ZEMAIRA [Suspect]
     Indication: ALPHA-1 ANTI-TRYPSIN DEFICIENCY
     Dosage: (60 MG/KG 1X/WEEK, 873 MG/20 ML VIAL; 0.08 ML/KG/MIN (6.68 ML/MIN) SUBCUTANEOUS)
     Route: 058
     Dates: start: 20101117
  13. ZEMAIRA [Suspect]
     Indication: ALPHA-1 ANTI-TRYPSIN DEFICIENCY
     Dosage: (873 MG/20 ML INTRAVENOUS (NOT OTHERWISE SPECIFIED))
     Route: 042
     Dates: start: 20101118
  14. ZEMAIRA [Suspect]
     Indication: CHRONIC OBSTRUCTIVE PULMONARY DISEASE
     Dosage: (873 MG/20 ML INTRAVENOUS (NOT OTHERWISE SPECIFIED))
     Route: 042
     Dates: start: 20101118
  15. ZEMAIRA [Suspect]
     Indication: ALPHA-1 ANTI-TRYPSIN DEFICIENCY
     Dosage: (60 MG/KG 1X/WEEK INTRAVENOUS (NOT OTHERWISE SPECIFIED))
     Route: 042
     Dates: start: 20101101
  16. ZEMAIRA [Suspect]
     Indication: CHRONIC OBSTRUCTIVE PULMONARY DISEASE
     Dosage: (60 MG/KG 1X/WEEK INTRAVENOUS (NOT OTHERWISE SPECIFIED))
     Route: 042
     Dates: start: 20101101
  17. SODIUM CHLORIDE 0.9% [Concomitant]
  18. METFORMIN HCL [Concomitant]
  19. ZYRTEC [Concomitant]
  20. SPIRIVA [Concomitant]
  21. SINGULAIR [Concomitant]
  22. FUROSEMIDE [Concomitant]
  23. KLOR-CON [Concomitant]
  24. EFFEXOR [Concomitant]
  25. PRAVASTATIN [Concomitant]

REACTIONS (2)
  - PARAESTHESIA [None]
  - HYPOAESTHESIA [None]
